FAERS Safety Report 8167790-6 (Version None)
Quarter: 2012Q1

REPORT INFORMATION
  Report Type: 
  Country: None (occurrence: None)
  Receive Date: 20120227
  Receipt Date: 20120220
  Transmission Date: 20120608
  Serious: Yes (Other)
  Sender: FDA-Public Use
  Company Number: FR-GILEAD-2012-0050590

PATIENT
  Sex: Female

DRUGS (5)
  1. LAMIVUDINE [Concomitant]
     Indication: HEPATITIS B
     Dosage: UNK
  2. VIREAD [Suspect]
     Indication: HEPATITIS B
     Dosage: 245 DF, UNK
     Route: 048
     Dates: start: 20110628, end: 20111104
  3. LEXOMIL [Concomitant]
  4. AMITRIPTYLINE HCL [Concomitant]
  5. SOLIAN [Concomitant]

REACTIONS (1)
  - VERTIGO [None]
